FAERS Safety Report 9712669 (Version 2)
Quarter: 2013Q4

REPORT INFORMATION
  Report Type: Spontaneous
  Country: US (occurrence: US)
  Receive Date: 20131126
  Receipt Date: 20131126
  Transmission Date: 20140711
  Serious: No
  Sender: FDA-Public Use
  Company Number: US-BRISTOL-MYERS SQUIBB COMPANY-18896035

PATIENT
  Age: 70 Year
  Sex: Female
  Weight: 74.37 kg

DRUGS (10)
  1. BYDUREON 2MG SUSPENSION [Suspect]
     Indication: TYPE 2 DIABETES MELLITUS
     Dates: start: 201304
  2. METFORMIN HCL [Suspect]
  3. GLYBURIDE [Suspect]
  4. PLAVIX [Concomitant]
  5. LIPITOR [Concomitant]
  6. ZETIA [Concomitant]
  7. TRICOR [Concomitant]
  8. CARVEDILOL [Concomitant]
  9. QUINAPRIL [Concomitant]
  10. BABY ASPIRIN [Concomitant]

REACTIONS (2)
  - Blood glucose increased [Not Recovered/Not Resolved]
  - Injection site nodule [Not Recovered/Not Resolved]
